FAERS Safety Report 9051563 (Version 6)
Quarter: 2015Q4

REPORT INFORMATION
  Report Type: Spontaneous
  Country: FR (occurrence: FR)
  Receive Date: 20130207
  Receipt Date: 20151026
  Transmission Date: 20160305
  Serious: Yes (Hospitalization, Other)
  Sender: FDA-Public Use
  Company Number: FR-BIOGENIDEC-2013BI012218

PATIENT
  Age: 40 Year
  Sex: Female

DRUGS (3)
  1. TYSABRI [Suspect]
     Active Substance: NATALIZUMAB
     Indication: MULTIPLE SCLEROSIS
     Route: 042
     Dates: start: 20120314, end: 20130113
  2. ZOLOFT [Concomitant]
     Active Substance: SERTRALINE HYDROCHLORIDE
  3. XANAX [Concomitant]
     Active Substance: ALPRAZOLAM

REACTIONS (12)
  - Aphasia [Recovered/Resolved]
  - Central nervous system lesion [Recovered/Resolved]
  - Multiple sclerosis relapse [Unknown]
  - Gastroenteritis [Unknown]
  - Drug ineffective [Unknown]
  - Dysarthria [Recovered/Resolved]
  - Drug specific antibody present [Unknown]
  - Hemianopia homonymous [Unknown]
  - Hemiplegia [Unknown]
  - Epilepsy [Unknown]
  - Hemianopia [Recovered/Resolved]
  - Road traffic accident [Recovered/Resolved]

NARRATIVE: CASE EVENT DATE: 201209
